FAERS Safety Report 4726403-3 (Version None)
Quarter: 2005Q3

REPORT INFORMATION
  Report Type: 
  Country: None (occurrence: None)
  Receive Date: 20050726
  Receipt Date: 20050712
  Transmission Date: 20060218
  Serious: Yes (Other)
  Sender: FDA-Public Use
  Company Number: GB-2005-013850

PATIENT

DRUGS (1)
  1. ULTRAVIST 150 [Suspect]
     Indication: ANGIOGRAM

REACTIONS (2)
  - CHOLANGITIS [None]
  - HEPATIC FUNCTION ABNORMAL [None]
